FAERS Safety Report 18192339 (Version 1)
Quarter: 2020Q3

REPORT INFORMATION
  Report Type: Spontaneous
  Country: CA (occurrence: CA)
  Receive Date: 20200825
  Receipt Date: 20200825
  Transmission Date: 20201103
  Serious: Yes (Life-Threatening)
  Sender: FDA-Public Use
  Company Number: CA-TEVA-2020-CA-1817647

PATIENT
  Age: 58 Year
  Sex: Male
  Weight: 124 kg

DRUGS (15)
  1. PROCYTOX [Suspect]
     Active Substance: CYCLOPHOSPHAMIDE
     Indication: CHRONIC LYMPHOCYTIC LEUKAEMIA
  2. FENOFIBRATE. [Concomitant]
     Active Substance: FENOFIBRATE
  3. FLUDARABINE [Concomitant]
     Active Substance: FLUDARABINE PHOSPHATE
  4. ACETAMINOPHEN. [Concomitant]
     Active Substance: ACETAMINOPHEN
  5. PREDNISONE. [Concomitant]
     Active Substance: PREDNISONE
  6. RITUXAN [Concomitant]
     Active Substance: RITUXIMAB
  7. ACYCLOVIR. [Concomitant]
     Active Substance: ACYCLOVIR
  8. CYCLOPHOSPHAMIDE. [Concomitant]
     Active Substance: CYCLOPHOSPHAMIDE
  9. ALLOPURINOL. [Concomitant]
     Active Substance: ALLOPURINOL
  10. BENADRYL [Concomitant]
     Active Substance: DIPHENHYDRAMINE HYDROCHLORIDE
  11. FILGRASTIM [Concomitant]
     Active Substance: FILGRASTIM
  12. SINGULAIR [Concomitant]
     Active Substance: MONTELUKAST SODIUM
  13. SULFAMETHOXAZOLE AND TRIMETHOPRIM [Concomitant]
     Active Substance: SULFAMETHOXAZOLE\TRIMETHOPRIM
  14. FLUDARABINE PHOSPHATE FOR INJECTION [Suspect]
     Active Substance: FLUDARABINE PHOSPHATE
     Indication: CHRONIC LYMPHOCYTIC LEUKAEMIA
     Route: 065
  15. REACTINE [Concomitant]

REACTIONS (3)
  - Myelodysplastic syndrome [Unknown]
  - Pancytopenia [Unknown]
  - Bone marrow failure [Unknown]
